FAERS Safety Report 7052548-1 (Version None)
Quarter: 2010Q4

REPORT INFORMATION
  Report Type: 
  Country: None (occurrence: None)
  Receive Date: 20101019
  Receipt Date: 20101013
  Transmission Date: 20110411
  Serious: Yes (Hospitalization, Other)
  Sender: FDA-Public Use
  Company Number: NL-PFIZER INC-2009232065

PATIENT
  Age: 70 Year
  Sex: Male
  Weight: 75 kg

DRUGS (13)
  1. BLINDED *NO SUBJECT DRUG [Interacting]
     Indication: CARDIAC FAILURE
     Dosage: UNK
     Route: 048
     Dates: start: 20081006, end: 20090625
  2. BLINDED *PLACEBO [Interacting]
     Indication: CARDIAC FAILURE
     Dosage: UNK
     Route: 048
     Dates: start: 20081006, end: 20090625
  3. BLINDED EPLERENONE [Interacting]
     Indication: CARDIAC FAILURE
     Dosage: UNK
     Route: 048
     Dates: start: 20081006, end: 20090625
  4. LISINOPRIL [Suspect]
     Dosage: UNK
     Route: 048
     Dates: end: 20090626
  5. FUROSEMIDE [Interacting]
     Dosage: 80 MG, 2X/DAY
     Route: 048
     Dates: start: 20080201, end: 20090625
  6. METOPROLOL TARTRATE [Suspect]
     Dosage: UNK
     Dates: end: 20090626
  7. ISOSORBIDE MONONITRATE [Concomitant]
     Dosage: UNK
     Route: 048
  8. VALSARTAN [Concomitant]
     Dosage: UNK
     Route: 048
  9. ACETYLSALICYLIC ACID [Concomitant]
     Dosage: UNK
     Route: 048
  10. THYRAX [Concomitant]
     Dosage: UNK
     Route: 048
  11. METFORMIN [Concomitant]
     Dosage: UNK
     Route: 048
  12. SPIRIVA [Concomitant]
     Dosage: UNK
     Route: 048
  13. EFFEXOR [Concomitant]
     Dosage: UNK
     Route: 048

REACTIONS (5)
  - CARDIAC FAILURE [None]
  - CONDITION AGGRAVATED [None]
  - DRUG INTERACTION [None]
  - MALAISE [None]
  - RENAL IMPAIRMENT [None]
